FAERS Safety Report 8888512 (Version 4)
Quarter: 2012Q4

REPORT INFORMATION
  Report Type: 
  Country: JP (occurrence: JP)
  Receive Date: 20121106
  Receipt Date: 20121228
  Transmission Date: 20130627
  Serious: Yes (Hospitalization)
  Sender: FDA-Public Use
  Company Number: JP-EISAI INC-E2090-02387-SPO-JP

PATIENT
  Age: 10 Year
  Sex: Male

DRUGS (2)
  1. EXCEGRAN [Suspect]
     Indication: EPILEPSY
     Dosage: 100 mg/daily
     Route: 048
     Dates: end: 20121026
  2. MYSTAN [Suspect]
     Indication: EPILEPSY
     Dosage: 5 mg/daily
     Route: 048
     Dates: end: 20121026

REACTIONS (1)
  - Erythema multiforme [Recovered/Resolved]
